FAERS Safety Report 12405697 (Version 2)
Quarter: 2016Q2

REPORT INFORMATION
  Report Type: Spontaneous
  Country: US (occurrence: US)
  Receive Date: 20160526
  Receipt Date: 20160617
  Transmission Date: 20160815
  Serious: No
  Sender: FDA-Public Use
  Company Number: US-GLAXOSMITHKLINE-US2016067709

PATIENT
  Age: 68 Year
  Sex: Female

DRUGS (2)
  1. VOLTAREN [Suspect]
     Active Substance: DICLOFENAC SODIUM
     Dosage: UNK
     Dates: start: 20160507
  2. VOLTAREN [Suspect]
     Active Substance: DICLOFENAC SODIUM
     Indication: ARTHRITIS
     Dosage: USED ONCE OR TWICE A DAY,UNK
     Dates: start: 2014

REACTIONS (2)
  - Inappropriate schedule of drug administration [Unknown]
  - Wrong technique in product usage process [Unknown]
